FAERS Safety Report 5627537-1 (Version None)
Quarter: 2008Q1

REPORT INFORMATION
  Report Type: 
  Country: None (occurrence: None)
  Receive Date: 20080215
  Receipt Date: 20071128
  Transmission Date: 20080703
  Serious: No
  Sender: FDA-Public Use
  Company Number: A0696304A

PATIENT
  Age: 78 Year
  Sex: Female

DRUGS (8)
  1. COREG CR [Suspect]
     Indication: HYPERTENSION
     Dosage: 20MG PER DAY
     Route: 048
  2. DIOVAN [Concomitant]
  3. SINEMET [Concomitant]
  4. ZETIA [Concomitant]
  5. PREVACID [Concomitant]
  6. ALPRAZOLAM [Concomitant]
  7. TYLENOL (CAPLET) [Concomitant]
  8. VITAMIN [Concomitant]

REACTIONS (4)
  - DRY EYE [None]
  - HOT FLUSH [None]
  - NERVOUSNESS [None]
  - VISION BLURRED [None]
